FAERS Safety Report 7950174-0 (Version None)
Quarter: 2011Q4

REPORT INFORMATION
  Report Type: 
  Country: None (occurrence: None)
  Receive Date: 20111130
  Receipt Date: 20111117
  Transmission Date: 20120403
  Serious: Yes (Hospitalization, Other)
  Sender: FDA-Public Use
  Company Number: NL-PFIZER INC-2011195170

PATIENT
  Age: 49 Year
  Sex: Male

DRUGS (22)
  1. TEMAZEPAM [Concomitant]
     Dosage: 10 MG, 1X/DAY
  2. CLOZAPINE [Suspect]
     Dosage: 500 MG, 1X/DAY
  3. QUETIAPINE [Concomitant]
     Indication: SCHIZOPHRENIA, PARANOID TYPE
     Dosage: 75 MG, 1X/DAY
  4. FOLIC ACID [Concomitant]
     Indication: SUPPLEMENTATION THERAPY
  5. METOPROLOL TARTRATE [Suspect]
     Indication: HYPERTENSION
     Dosage: 50 MG, 1X/DAY
  6. ESOMEPRAZOLE [Concomitant]
     Dosage: 40 MG, 1X/DAY
  7. ENALAPRIL MALEATE [Suspect]
     Indication: HYPERTENSION
     Dosage: 10 MG, 1X/DAY
  8. VITAMIN B-12 [Concomitant]
     Indication: SUPPLEMENTATION THERAPY
  9. CLOZAPINE [Suspect]
     Indication: SCHIZOPHRENIA, PARANOID TYPE
     Dosage: 325 MG, 1X/DAY
  10. OXAZEPAM [Concomitant]
     Dosage: 40 MG, 1X/DAY
  11. CARBASALATE CALCIUM [Concomitant]
     Indication: HYPERTENSION
     Dosage: 100 MG, UNK
  12. DIPYRIDAMOLE [Concomitant]
     Indication: HYPERTENSION
     Dosage: 200 MG, UNK
  13. METOPROLOL TARTRATE [Suspect]
     Dosage: 200 MG, 1X/DAY
  14. OXAZEPAM [Concomitant]
     Dosage: 20 MG, 1X/DAY
  15. HYDROCHLOROTHIAZIDE [Concomitant]
     Indication: HYPERTENSION
     Dosage: 25 MG, UNK
  16. SIMVASTATIN [Concomitant]
     Indication: PROPHYLAXIS
     Dosage: 40 MG, 1X/DAY
  17. RISPERIDONE [Suspect]
     Indication: SCHIZOPHRENIA, PARANOID TYPE
     Dosage: 2 MG, UNK
  18. AMLODIPINE BESYLATE [Suspect]
     Indication: HYPERTENSION
     Dosage: 5 MG, UNK
  19. CLOZAPINE [Suspect]
     Dosage: 250 MG, 1X/DAY
  20. CLOZAPINE [Suspect]
     Dosage: 300 MG, 1X/DAY
  21. HALOPERIDOL [Concomitant]
     Indication: PSYCHOTIC DISORDER
     Dosage: 5 MG, 1 D
  22. QUETIAPINE [Concomitant]
     Dosage: 600 MG, UNK

REACTIONS (6)
  - PERIORBITAL OEDEMA [None]
  - OEDEMA [None]
  - EXTRAPYRAMIDAL DISORDER [None]
  - HYPERTENSIVE CRISIS [None]
  - ANGIOEDEMA [None]
  - DRUG INEFFECTIVE [None]
